FAERS Safety Report 8483176-9 (Version None)
Quarter: 2012Q3

REPORT INFORMATION
  Report Type: 
  Country: None (occurrence: None)
  Receive Date: 20120702
  Receipt Date: 20120620
  Transmission Date: 20120928
  Serious: Yes (Other)
  Sender: FDA-Public Use
  Company Number: JP-VERTEX PHARMACEUTICALS INC.-AE-2012-006168

PATIENT
  Age: 48 Year
  Sex: Male

DRUGS (5)
  1. PEGINTERFERON ALFA-2B [Concomitant]
     Indication: HEPATITIS C
     Route: 058
     Dates: start: 20120220
  2. TELAVIC (TELAPREVIR) [Suspect]
     Indication: HEPATITIS C
     Route: 048
     Dates: start: 20120220
  3. REBETOL [Concomitant]
     Route: 048
     Dates: start: 20120402
  4. TELAVIC (TELAPREVIR) [Suspect]
     Route: 048
     Dates: start: 20120402, end: 20120514
  5. REBETOL [Concomitant]
     Indication: HEPATITIS C
     Route: 048
     Dates: start: 20120220

REACTIONS (1)
  - DRUG ERUPTION [None]
